FAERS Safety Report 6405904-6 (Version None)
Quarter: 2009Q4

REPORT INFORMATION
  Report Type: 
  Country: None (occurrence: None)
  Receive Date: 20091016
  Receipt Date: 20091016
  Transmission Date: 20100525
  Serious: Yes (Life-Threatening)
  Sender: FDA-Public Use
  Company Number: None

PATIENT
  Age: 33 Year
  Sex: Female
  Weight: 56.6996 kg

DRUGS (1)
  1. CELEBREX [Suspect]
     Indication: PLANTAR FASCIITIS
     Dosage: 200 MG DAILY PO
     Route: 048
     Dates: start: 20091009, end: 20091014

REACTIONS (5)
  - CHEST DISCOMFORT [None]
  - CHEST PAIN [None]
  - HEART RATE IRREGULAR [None]
  - HOT FLUSH [None]
  - HYPERHIDROSIS [None]
